FAERS Safety Report 21691817 (Version 1)
Quarter: 2022Q4

REPORT INFORMATION
  Report Type: Spontaneous
  Country: CN (occurrence: CN)
  Receive Date: 20221207
  Receipt Date: 20221207
  Transmission Date: 20230112
  Serious: Yes (Hospitalization, Other)
  Sender: FDA-Public Use
  Company Number: None

PATIENT
  Age: 15 Year
  Sex: Female
  Weight: 49 kg

DRUGS (7)
  1. CYCLOPHOSPHAMIDE [Suspect]
     Active Substance: CYCLOPHOSPHAMIDE
     Indication: Thalassaemia beta
     Dosage: 2940 MG, ONCE DAILY, (ROUTE: INTRA-PUMP INJECTION), DILUTED WITH 250 ML OF 0.9 % SODIUM CHLORIDE
     Route: 050
     Dates: start: 20221020, end: 20221022
  2. SODIUM CHLORIDE [Suspect]
     Active Substance: SODIUM CHLORIDE
     Indication: Medication dilution
     Dosage: 250 ML, ONCE DAILY, (ROUTE: INTRA-PUMP INJECTION), USED TO DILUTE 2940 MG CYCLOPHOSPHAMIDE
     Route: 050
     Dates: start: 20221020, end: 20221022
  3. SODIUM CHLORIDE [Suspect]
     Active Substance: SODIUM CHLORIDE
     Dosage: 150 ML, ONCE DAILY, (ROUTE: INTRA-PUMP INJECTION), USED TO DILUTE 58.3 MG FLUDARABINE PHOSPHATE
     Route: 050
     Dates: start: 20221024, end: 20221028
  4. RITUXIMAB [Suspect]
     Active Substance: RITUXIMAB
     Indication: Thalassaemia beta
     Dosage: 100 MG, ONCE DAILY, (ROUTE: INTRA-PUMP INJECTION)
     Route: 050
     Dates: start: 20221030, end: 20221030
  5. THIOTEPA [Suspect]
     Active Substance: THIOTEPA
     Indication: Thalassaemia beta
     Dosage: 240 MG, ONCE IN 2 DAYS
     Route: 041
     Dates: start: 20221026, end: 20221028
  6. FLUDARABINE PHOSPHATE [Suspect]
     Active Substance: FLUDARABINE PHOSPHATE
     Indication: Thalassaemia beta
     Dosage: 58.3 MG, ONCE DAILY, (ROUTE: INTRA-PUMP INJECTION), DILUTED WITH 150 ML OF 0.9 % SODIUM CHLORIDE
     Route: 050
     Dates: start: 20221024, end: 20221028
  7. BUSULFAN [Suspect]
     Active Substance: BUSULFAN
     Indication: Thalassaemia beta
     Dosage: 30 MG, ONCE DAILY
     Route: 041
     Dates: start: 20221022, end: 20221022

REACTIONS (2)
  - Myelosuppression [Recovering/Resolving]
  - Platelet count decreased [Recovering/Resolving]

NARRATIVE: CASE EVENT DATE: 20221105
